FAERS Safety Report 9350939 (Version 2)
Quarter: 2013Q3

REPORT INFORMATION
  Report Type: Spontaneous
  Country: CN (occurrence: CN)
  Receive Date: 20130617
  Receipt Date: 20130819
  Transmission Date: 20140515
  Serious: Yes (Life-Threatening)
  Sender: FDA-Public Use
  Company Number: CN-SANOFI-AVENTIS-2013SA057575

PATIENT
  Age: 46 Year
  Sex: Male
  Weight: 64 kg

DRUGS (4)
  1. ELOXATIN [Suspect]
     Indication: BILE DUCT CANCER
     Dosage: DOSAGE: 3 VIALS
     Route: 065
     Dates: start: 201210
  2. ELOXATIN [Suspect]
     Indication: BILE DUCT CANCER
     Dosage: DOSE: 3 VIALS
     Route: 041
     Dates: start: 20130527
  3. HERBAL PREPARATION [Concomitant]
     Indication: SUPPORTIVE CARE
  4. GEMZAR [Concomitant]
     Indication: BILE DUCT CANCER
     Dates: start: 201210

REACTIONS (5)
  - Cerebral infarction [Recovered/Resolved]
  - Off label use [Unknown]
  - Syncope [Recovered/Resolved]
  - Loss of consciousness [Recovered/Resolved]
  - Fall [Recovered/Resolved]
